FAERS Safety Report 5259769-9 (Version None)
Quarter: 2007Q1

REPORT INFORMATION
  Report Type: 
  Country: None (occurrence: None)
  Receive Date: 20061117
  Receipt Date: 20060512
  Transmission Date: 20070707
  Serious: Yes (Other)
  Sender: FDA-Public Use
  Company Number: US-JNJFOC-20060503022

PATIENT
  Age: 36 Year
  Sex: Male
  Weight: 93.441 kg

DRUGS (2)
  1. LEVAQUIN [Suspect]
     Indication: GASTROINTESTINAL INFECTION
     Dosage: 500 MG, 1 IN 1 DAY, ORAL
     Route: 048
     Dates: start: 20060501, end: 20060510
  2. FLAGYL [Concomitant]

REACTIONS (1)
  - PAIN IN EXTREMITY [None]
